FAERS Safety Report 18453467 (Version 1)
Quarter: 2020Q4

REPORT INFORMATION
  Report Type: Report from Study
  Country: US (occurrence: US)
  Receive Date: 20201102
  Receipt Date: 20201102
  Transmission Date: 20210114
  Serious: Yes (Hospitalization)
  Sender: FDA-Public Use
  Company Number: US-PFIZER INC-2020418349

PATIENT
  Age: 6 Year
  Sex: Male
  Weight: 20.85 kg

DRUGS (11)
  1. CYTARABINE. [Suspect]
     Active Substance: CYTARABINE
     Dosage: 60 MG, DAILY (FOR THREE DAYS)
     Route: 058
     Dates: start: 20190326, end: 20190329
  2. BACTRIM [Concomitant]
     Active Substance: SULFAMETHOXAZOLE\TRIMETHOPRIM
     Dosage: UNK
     Dates: start: 20190209
  3. PEGASPARGASE [Suspect]
     Active Substance: PEGASPARGASE
     Indication: ACUTE LYMPHOCYTIC LEUKAEMIA
     Dosage: 2500 U/M2 X .78 M2, AS NEEDED
     Route: 042
     Dates: start: 20190210
  4. CYTARABINE. [Suspect]
     Active Substance: CYTARABINE
     Dosage: 60 MG, DAILY (FOR 2 TO 4 DAYS)
     Route: 058
     Dates: start: 20190207
  5. INCB018424 [Suspect]
     Active Substance: RUXOLITINIB
     Indication: ACUTE LYMPHOCYTIC LEUKAEMIA
     Dosage: 40 MG, 2X/DAY
     Route: 048
     Dates: start: 20190318
  6. VINCRISTINE SULFATE. [Suspect]
     Active Substance: VINCRISTINE SULFATE
     Indication: ACUTE LYMPHOCYTIC LEUKAEMIA
     Dosage: 1.2 MG ONCE AT INDICATED TIME POINTS
     Route: 042
     Dates: start: 20190207
  7. CYTARABINE. [Suspect]
     Active Substance: CYTARABINE
     Indication: ACUTE LYMPHOCYTIC LEUKAEMIA
     Dosage: 60 MG FOR DAY1
     Route: 042
     Dates: start: 20190207
  8. METHOTREXATE SODIUM. [Suspect]
     Active Substance: METHOTREXATE SODIUM
     Indication: ACUTE LYMPHOCYTIC LEUKAEMIA
     Dosage: 12 MG, ONCE AT INDICATED TIME POINTS
     Route: 037
     Dates: start: 20190318
  9. CYCLOPHOSPHAMIDE. [Suspect]
     Active Substance: CYCLOPHOSPHAMIDE
     Dosage: 800 MG, ONCE AT INDICATED TIME POINTS
     Route: 042
     Dates: start: 20190318
  10. MERCAPTOPURINE. [Suspect]
     Active Substance: MERCAPTOPURINE
     Indication: ACUTE LYMPHOCYTIC LEUKAEMIA
     Dosage: 50 MG, 1X/DAY FOR 14 DAYS (23DAYS)
     Route: 048
     Dates: start: 20190313, end: 20190404
  11. CEFTRIAXONE. [Concomitant]
     Active Substance: CEFTRIAXONE
     Dosage: UNK
     Dates: start: 20190206

REACTIONS (1)
  - Febrile neutropenia [Recovered/Resolved]

NARRATIVE: CASE EVENT DATE: 20190406
